FAERS Safety Report 9398459 (Version 1)
Quarter: 2013Q3

REPORT INFORMATION
  Report Type: Spontaneous
  Country: US (occurrence: US)
  Receive Date: 20130712
  Receipt Date: 20130712
  Transmission Date: 20140515
  Serious: Yes (Other)
  Sender: FDA-Public Use
  Company Number: US-OTSUKA-US-2013-11294

PATIENT
  Age: 2 Year
  Sex: 0

DRUGS (4)
  1. BUSULFEX [Suspect]
     Indication: STEM CELL TRANSPLANT
     Dosage: 1 MG/KG, 4 X DAY X 10 DOSES
  2. MELPHALAN [Concomitant]
     Indication: STEM CELL TRANSPLANT
     Dosage: 70 MG/M2, X 2 DAYS
  3. FLUDARABINE [Concomitant]
     Indication: STEM CELL TRANSPLANT
     Dosage: 40 MG/M2, X 4 DAYS
  4. ANTI-THYMOCTYE GLOBULIN [Concomitant]
     Indication: STEM CELL TRANSPLANT

REACTIONS (2)
  - Gross motor delay [Unknown]
  - Failure to thrive [Unknown]
